FAERS Safety Report 24782660 (Version 3)
Quarter: 2025Q1

REPORT INFORMATION
  Report Type: Spontaneous
  Country: JP (occurrence: JP)
  Receive Date: 20241227
  Receipt Date: 20250130
  Transmission Date: 20250408
  Serious: Yes (Hospitalization)
  Sender: NOVARTIS
  Company Number: JP-MLMSERVICE-20241211-PI295569-00336-1

PATIENT
  Age: 20 Month
  Sex: Male

DRUGS (1)
  1. ZOMETA [Suspect]
     Active Substance: ZOLEDRONIC ACID
     Indication: Langerhans^ cell histiocytosis
     Dosage: 1 MG, QMO
     Route: 042

REACTIONS (1)
  - Tooth development disorder [Unknown]
